FAERS Safety Report 20101672 (Version 1)
Quarter: 2021Q4

REPORT INFORMATION
  Report Type: Report from Study
  Country: US (occurrence: US)
  Receive Date: 20211123
  Receipt Date: 20211123
  Transmission Date: 20220303
  Serious: Yes (Death)
  Sender: FDA-Public Use
  Company Number: US-MYLANLABS-2021M1086636

PATIENT
  Sex: Female

DRUGS (5)
  1. PACLITAXEL [Suspect]
     Active Substance: PACLITAXEL
     Indication: Ovarian epithelial cancer
     Dosage: UNK UNK, Q3W, BY ONE HOUR ONCE EVERY THREE WEEKS
     Route: 042
  2. CARBOPLATIN [Suspect]
     Active Substance: CARBOPLATIN
     Indication: Ovarian epithelial cancer
     Dosage: UNK UNK, Q3W,  BY ONE HOUR ONCE EVERY THREE WEEKS
     Route: 042
  3. AVELUMAB [Suspect]
     Active Substance: AVELUMAB
     Indication: Ovarian epithelial cancer
     Dosage: 10 MILLIGRAM/KILOGRAM, BIWEEKLY, BY 1-H ONCE EVERY TWO WEEKS
     Route: 042
  4. DIPHENHYDRAMINE [Concomitant]
     Active Substance: DIPHENHYDRAMINE
     Indication: Premedication
     Dosage: UNK
     Route: 065
  5. ACETAMINOPHEN [Concomitant]
     Active Substance: ACETAMINOPHEN
     Indication: Premedication
     Dosage: UNK
     Route: 065

REACTIONS (1)
  - Atrial fibrillation [Fatal]
